FAERS Safety Report 5177038-2 (Version None)
Quarter: 2006Q4

REPORT INFORMATION
  Report Type: 
  Country: None (occurrence: None)
  Receive Date: 20061218
  Receipt Date: 20061018
  Transmission Date: 20070319
  Serious: Yes (Hospitalization)
  Sender: FDA-Public Use
  Company Number: FR-GLAXOSMITHKLINE-B0443975A

PATIENT
  Age: 5 Year
  Sex: Male
  Weight: 20 kg

DRUGS (3)
  1. LANVIS [Suspect]
     Indication: LYMPHOCYTIC LEUKAEMIA
     Route: 048
     Dates: start: 20060515, end: 20060530
  2. ENDOXAN [Concomitant]
     Indication: LYMPHOCYTIC LEUKAEMIA
     Route: 065
     Dates: start: 20060515, end: 20060515
  3. ARACYTINE [Concomitant]
     Indication: LYMPHOCYTIC LEUKAEMIA
     Route: 042
     Dates: start: 20060520, end: 20060530

REACTIONS (17)
  - ABDOMINAL DISTENSION [None]
  - ABDOMINAL PAIN [None]
  - ASCITES [None]
  - COAGULOPATHY [None]
  - COUGH [None]
  - GENERAL PHYSICAL HEALTH DETERIORATION [None]
  - HAEMORRHAGIC DISORDER [None]
  - HEPATIC PAIN [None]
  - HEPATIC VEIN STENOSIS [None]
  - HEPATOMEGALY [None]
  - JAUNDICE [None]
  - PORTAL HYPERTENSION [None]
  - PROTHROMBIN LEVEL DECREASED [None]
  - PYREXIA [None]
  - THROMBOCYTOPENIA [None]
  - VENOOCCLUSIVE LIVER DISEASE [None]
  - WEIGHT INCREASED [None]
